FAERS Safety Report 4785866-8 (Version None)
Quarter: 2005Q4

REPORT INFORMATION
  Report Type: 
  Country: None (occurrence: None)
  Receive Date: 20051003
  Receipt Date: 20050817
  Transmission Date: 20060501
  Serious: Yes (Other)
  Sender: FDA-Public Use
  Company Number: US-ROCHE-414868

PATIENT
  Age: 38 Year
  Sex: Male
  Weight: 68 kg

DRUGS (6)
  1. FUZEON [Suspect]
     Route: 058
     Dates: start: 20050718, end: 20050728
  2. FUZEON [Suspect]
     Route: 058
     Dates: start: 20050812
  3. RITONAVIR [Concomitant]
     Route: 048
     Dates: start: 20050718, end: 20050728
  4. TRUVADA [Concomitant]
     Dosage: DAILY.
     Route: 048
     Dates: start: 20050718, end: 20050728
  5. SAQUINAVIR [Concomitant]
     Route: 048
     Dates: start: 20050718, end: 20050728
  6. HIV PROTEINASE INHIBITOR [Concomitant]
     Dosage: DRUG NAME WAS REPORTED AS INTEGRASE INHIBITOR SO.
     Route: 048
     Dates: start: 20050718, end: 20050728

REACTIONS (2)
  - INJECTION SITE ERYTHEMA [None]
  - MYOSITIS [None]
